FAERS Safety Report 4850730-2 (Version None)
Quarter: 2005Q4

REPORT INFORMATION
  Report Type: 
  Country: None (occurrence: None)
  Receive Date: 20051208
  Receipt Date: 20051125
  Transmission Date: 20060501
  Serious: Yes (Hospitalization, Other)
  Sender: FDA-Public Use
  Company Number: 2005162288

PATIENT
  Age: 56 Year
  Sex: Male

DRUGS (5)
  1. LYRICA [Suspect]
     Indication: POLYNEUROPATHY
     Dosage: 300 MG (150 MG 2 IN 1 D) ORAL
     Route: 048
     Dates: start: 20050829
  2. TRYPTIZOL [Concomitant]
  3. DICLOFENAC SODIUM [Concomitant]
  4. CODEINE (CODEINE) [Concomitant]
  5. VITAMINS (VITAMINS) [Concomitant]

REACTIONS (4)
  - BACTERIAL INFECTION [None]
  - RESPIRATORY TRACT INFECTION VIRAL [None]
  - SEPTIC SHOCK [None]
  - SUPERINFECTION [None]
